FAERS Safety Report 20874950 (Version 1)
Quarter: 2022Q2

REPORT INFORMATION
  Report Type: Spontaneous
  Country: US (occurrence: US)
  Receive Date: 20220526
  Receipt Date: 20220526
  Transmission Date: 20220721
  Serious: No
  Sender: FDA-Public Use
  Company Number: US-BANNER LIFE SCIENCES, LLC-2022BAN000091

PATIENT

DRUGS (1)
  1. BAFIERTAM [Suspect]
     Active Substance: MONOMETHYL FUMARATE
     Indication: Product used for unknown indication
     Dosage: 190 MG, BID
     Route: 048
     Dates: start: 202202

REACTIONS (7)
  - Vulvovaginal pain [Unknown]
  - Back pain [Unknown]
  - Abdominal discomfort [Unknown]
  - Abdominal pain [Unknown]
  - Dyspnoea [Unknown]
  - Vomiting [Unknown]
  - Flushing [Unknown]

NARRATIVE: CASE EVENT DATE: 20220201
